FAERS Safety Report 7101622-X (Version None)
Quarter: 2010Q4

REPORT INFORMATION
  Report Type: 
  Country: None (occurrence: None)
  Receive Date: 20101115
  Receipt Date: 20101102
  Transmission Date: 20110411
  Serious: Yes (Other)
  Sender: FDA-Public Use
  Company Number: US-JNJFOC-20101103520

PATIENT
  Age: 49 Year
  Sex: Female

DRUGS (6)
  1. TOPIRAMATE [Suspect]
     Indication: NEUROPATHY PERIPHERAL
     Route: 065
  2. TOPIRAMATE [Suspect]
     Route: 065
  3. OLANZAPINE [Concomitant]
     Route: 065
  4. ATORVASTATIN [Concomitant]
     Route: 065
  5. ASPIRIN [Concomitant]
     Route: 065
  6. ESOMEPRAZOLE [Concomitant]
     Route: 065

REACTIONS (8)
  - ABDOMINAL TENDERNESS [None]
  - CALCULUS URETERIC [None]
  - CONFUSIONAL STATE [None]
  - LETHARGY [None]
  - METABOLIC ACIDOSIS [None]
  - MUCOSAL DRYNESS [None]
  - RENAL FAILURE ACUTE [None]
  - URETERIC OBSTRUCTION [None]
